FAERS Safety Report 6648839-6 (Version None)
Quarter: 2010Q1

REPORT INFORMATION
  Report Type: 
  Country: None (occurrence: None)
  Receive Date: 20100324
  Receipt Date: 20100316
  Transmission Date: 20100710
  Serious: Yes (Other)
  Sender: FDA-Public Use
  Company Number: PHHY2010BR16396

PATIENT
  Sex: Female

DRUGS (3)
  1. DIOVAN HCT [Suspect]
     Indication: HYPERTENSION
     Dosage: 320/25 MG
     Route: 048
  2. MANIDIPINE HYDROCHLORIDE [Concomitant]
     Indication: HYPERTENSION
     Dosage: 1 TABLET DAILY
  3. AMIODARONE [Concomitant]
     Indication: HYPERTENSION
     Dosage: 1 TABLET DAILY

REACTIONS (1)
  - ARTHROPATHY [None]
